FAERS Safety Report 21629808 (Version 2)
Quarter: 2022Q4

REPORT INFORMATION
  Report Type: Spontaneous
  Country: US (occurrence: US)
  Receive Date: 20221122
  Receipt Date: 20221124
  Transmission Date: 20230113
  Serious: Yes (Hospitalization, Other)
  Sender: FDA-Public Use
  Company Number: US-AMGEN-USASP2022198117

PATIENT
  Age: 75 Year
  Sex: Female

DRUGS (5)
  1. REPATHA [Suspect]
     Active Substance: EVOLOCUMAB
     Indication: Blood cholesterol increased
     Dosage: 140 MILLIGRAM, Q2WK
     Route: 065
     Dates: start: 201901
  2. BUPROPION [Concomitant]
     Active Substance: BUPROPION
     Indication: Asthenia
     Dosage: 100 MILLIGRAM 3 TIMES A DAY
     Route: 065
     Dates: start: 20220918
  3. BUPROPION [Concomitant]
     Active Substance: BUPROPION
     Dosage: 100 UNK
  4. BUPROPION [Concomitant]
     Active Substance: BUPROPION
     Dosage: 300 UNK
  5. BUDESONIDE [Concomitant]
     Active Substance: BUDESONIDE
     Indication: Colitis
     Dosage: 3 MILLIGRAM, 3 TIMES A DAY

REACTIONS (8)
  - Coronary artery occlusion [Unknown]
  - Unevaluable event [Recovered/Resolved]
  - Pain [Unknown]
  - Illness [Unknown]
  - Infection [Not Recovered/Not Resolved]
  - Circumstance or information capable of leading to medication error [Unknown]
  - Product storage error [Unknown]
  - Intercepted product administration error [Unknown]

NARRATIVE: CASE EVENT DATE: 20220101
